FAERS Safety Report 11863020 (Version 1)
Quarter: 2015Q4

REPORT INFORMATION
  Report Type: Other
  Country: US (occurrence: US)
  Receive Date: 20151223
  Receipt Date: 20151223
  Transmission Date: 20160305
  Serious: Yes (Other)
  Sender: FDA-Public Use
  Company Number: US-LUPIN PHARMACEUTICALS INC.-2015-04234

PATIENT
  Age: 78 Year
  Sex: Male

DRUGS (5)
  1. CARVEDILOL. [Suspect]
     Active Substance: CARVEDILOL
     Indication: PRODUCT USED FOR UNKNOWN INDICATION
     Route: 065
  2. BICALUTAMIDE. [Concomitant]
     Active Substance: BICALUTAMIDE
     Indication: ADENOCARCINOMA
     Route: 065
  3. DOCETAXEL. [Interacting]
     Active Substance: DOCETAXEL
     Dosage: 75 MG/M2
     Route: 065
  4. LEUPROLIDE [Concomitant]
     Active Substance: LEUPROLIDE
     Indication: ADENOCARCINOMA
     Route: 065
  5. DOCETAXEL. [Interacting]
     Active Substance: DOCETAXEL
     Indication: ADENOCARCINOMA
     Dosage: 75 MG/M2
     Route: 065

REACTIONS (2)
  - Cholangitis sclerosing [Not Recovered/Not Resolved]
  - Drug interaction [Unknown]
